FAERS Safety Report 15108580 (Version 7)
Quarter: 2019Q2

REPORT INFORMATION
  Report Type: Report from Study
  Country: CA (occurrence: CA)
  Receive Date: 20180705
  Receipt Date: 20190405
  Transmission Date: 20190711
  Serious: Yes (Hospitalization, Other)
  Sender: FDA-Public Use
  Company Number: CA-ALXN-A201807243AA

PATIENT
  Age: 84 Year
  Sex: Male
  Weight: 70 kg

DRUGS (5)
  1. IRON SULFATE [Concomitant]
     Active Substance: FERROUS SULFATE ANHYDROUS
     Indication: PRODUCT USED FOR UNKNOWN INDICATION
     Dosage: 300 MG DIE
     Route: 048
     Dates: start: 201706
  2. SOLIRIS [Suspect]
     Active Substance: ECULIZUMAB
     Dosage: 900 MG, EVERY 14 DAYS
     Route: 042
     Dates: start: 20170508
  3. SOLIRIS [Suspect]
     Active Substance: ECULIZUMAB
     Indication: PAROXYSMAL NOCTURNAL HAEMOGLOBINURIA
     Dosage: 600 MG, QW
     Route: 042
     Dates: start: 20170410
  4. SOLIRIS [Suspect]
     Active Substance: ECULIZUMAB
     Dosage: 900 MG, Q2W
     Route: 042
     Dates: start: 20170508
  5. PENICILLIN                         /00000901/ [Concomitant]
     Active Substance: PENICILLIN G
     Indication: PROPHYLAXIS
     Dosage: UNK
     Route: 065

REACTIONS (23)
  - Hepatic lesion [Not Recovered/Not Resolved]
  - Cellulitis [Unknown]
  - Pancytopenia [Recovered/Resolved]
  - Urinary tract infection [Not Recovered/Not Resolved]
  - Fracture [Unknown]
  - Osteoporosis [Unknown]
  - Mobility decreased [Unknown]
  - Streptococcal bacteraemia [Recovered/Resolved]
  - Pain [Unknown]
  - Hepatic infection [Recovered/Resolved]
  - Confusional state [Not Recovered/Not Resolved]
  - Gait disturbance [Not Recovered/Not Resolved]
  - Memory impairment [Not Recovered/Not Resolved]
  - Cognitive disorder [Unknown]
  - Tooth discolouration [Not Recovered/Not Resolved]
  - Insomnia [Not Recovered/Not Resolved]
  - Liver abscess [Unknown]
  - Dementia [Unknown]
  - Stress [Unknown]
  - Back pain [Not Recovered/Not Resolved]
  - Bacteraemia [Unknown]
  - Weight decreased [Unknown]
  - Chills [Recovered/Resolved]

NARRATIVE: CASE EVENT DATE: 2018
